FAERS Safety Report 5535484-9 (Version None)
Quarter: 2007Q4

REPORT INFORMATION
  Report Type: 
  Country: None (occurrence: None)
  Receive Date: 20071203
  Receipt Date: 20071203
  Transmission Date: 20080405
  Serious: Yes (Other)
  Sender: FDA-Public Use
  Company Number: None

PATIENT
  Age: 43 Year
  Sex: Female
  Weight: 154.223 kg

DRUGS (1)
  1. CHANTIX [Suspect]
     Dosage: 0.5 MG  - 1 TABLET   1 TABLET PER DAY
     Dates: start: 20071127, end: 20071130

REACTIONS (3)
  - DOCUMENTED HYPERSENSITIVITY TO ADMINISTERED DRUG [None]
  - DRUG HYPERSENSITIVITY [None]
  - PYREXIA [None]
